FAERS Safety Report 19537690 (Version 1)
Quarter: 2021Q3

REPORT INFORMATION
  Report Type: Spontaneous
  Country: IN (occurrence: IN)
  Receive Date: 20210713
  Receipt Date: 20210713
  Transmission Date: 20211014
  Serious: Yes (Hospitalization, Other)
  Sender: FDA-Public Use
  Company Number: IN-MSNLABS-2021MSNLIT00233

PATIENT
  Age: 69 Year
  Sex: Male

DRUGS (7)
  1. CLOPIDOGREL [Concomitant]
     Active Substance: CLOPIDOGREL BISULFATE
     Indication: LEFT VENTRICULAR FAILURE
  2. ASPIRIN. [Concomitant]
     Active Substance: ASPIRIN
     Indication: MYOCARDIAL ISCHAEMIA
     Route: 065
  3. ASPIRIN. [Concomitant]
     Active Substance: ASPIRIN
     Indication: LEFT VENTRICULAR FAILURE
  4. CLOPIDOGREL [Concomitant]
     Active Substance: CLOPIDOGREL BISULFATE
     Indication: MYOCARDIAL ISCHAEMIA
     Route: 065
  5. ROSUVASTATIN TABLETS 40 MG [Suspect]
     Active Substance: ROSUVASTATIN
     Indication: MYOCARDIAL ISCHAEMIA
     Route: 065
  6. ROSUVASTATIN TABLETS 40 MG [Suspect]
     Active Substance: ROSUVASTATIN
     Indication: LEFT VENTRICULAR FAILURE
  7. NOR?ADRENALINE [Interacting]
     Active Substance: NOREPINEPHRINE
     Indication: BLOOD PRESSURE MEASUREMENT
     Route: 065

REACTIONS (4)
  - Rhabdomyolysis [Recovered/Resolved]
  - Tachycardia [Recovered/Resolved]
  - Metabolic acidosis [Recovered/Resolved]
  - Renal impairment [Recovered/Resolved]
